FAERS Safety Report 9637141 (Version 2)
Quarter: 2013Q4

REPORT INFORMATION
  Report Type: Spontaneous
  Country: BE (occurrence: BE)
  Receive Date: 20131022
  Receipt Date: 20131120
  Transmission Date: 20140711
  Serious: Yes (Hospitalization, Other)
  Sender: FDA-Public Use
  Company Number: BE-009507513-1310BEL008310

PATIENT
  Age: 78 Year
  Sex: Male
  Weight: 72 kg

DRUGS (10)
  1. JANUVIA [Suspect]
     Indication: TYPE 2 DIABETES MELLITUS
     Dosage: 100 MG, QD
     Route: 048
     Dates: end: 201309
  2. GLUCOPHAGE [Concomitant]
     Indication: TYPE 2 DIABETES MELLITUS
     Dosage: TID
     Route: 048
  3. GLUCOPHAGE [Concomitant]
     Dosage: 1000 MG, QD (AT 8.00 AM AND 5.00 PM)
  4. ASAFLOW [Concomitant]
     Dosage: 80 MG, QD (AT 8:00 AM)
     Route: 048
     Dates: start: 20130915
  5. BEFACT FORTE [Concomitant]
     Dosage: 2 TABLETS ONCE A DAY (AT 8.00 AM) 2 TABLETS
     Dates: start: 20130915
  6. BISOPROLOL [Concomitant]
     Dosage: 1 TABLET ONCE A DAY AT 8.00 AM
     Route: 048
     Dates: start: 20130915
  7. COVERSYL PLUS (INDAPAMIDE (+) PERINDOPRIL ARGININE) [Concomitant]
     Dosage: 1 DF, QD AT 8 .00 AM
     Route: 048
     Dates: start: 20130915
  8. LASIX (FUROSEMIDE SODIUM) [Concomitant]
     Dosage: 20 MG, QD AT 8.00AM
     Route: 048
     Dates: start: 20130915
  9. LORMETAZEPAM [Concomitant]
     Dosage: 1 DF, QD AT 10.00PM
     Route: 048
     Dates: start: 20130915
  10. SIMVASTATIN [Concomitant]
     Dosage: 1 DF, QD AT 8.00 PM
     Route: 048
     Dates: start: 20130915

REACTIONS (12)
  - Pancreatic mass [Not Recovered/Not Resolved]
  - C-reactive protein increased [Unknown]
  - Toxicity to various agents [Unknown]
  - Blood bilirubin abnormal [Unknown]
  - Pancreatic neoplasm [Unknown]
  - Intraductal papillary mucinous neoplasm [Unknown]
  - Metastases to stomach [Unknown]
  - Pancreatic neoplasm [Unknown]
  - Metastases to liver [Unknown]
  - Drug-induced liver injury [Recovered/Resolved]
  - Renal failure [Recovered/Resolved]
  - Transaminases abnormal [Recovered/Resolved]
